FAERS Safety Report 25872168 (Version 1)
Quarter: 2025Q4

REPORT INFORMATION
  Report Type: Spontaneous
  Country: US (occurrence: US)
  Receive Date: 20251002
  Receipt Date: 20251002
  Transmission Date: 20260117
  Serious: No
  Sender: DR REDDYS
  Company Number: US-DRL-USA-USA/2025/09/014787

PATIENT

DRUGS (1)
  1. ZENATANE [Suspect]
     Active Substance: ISOTRETINOIN
     Indication: Product used for unknown indication
     Dosage: LAST DOSE WAS TAKEN IN APRIL 2025 OR MAY 2025
     Dates: start: 20250101

REACTIONS (2)
  - Circumstance or information capable of leading to medication error [Unknown]
  - Therapy interrupted [Unknown]
